FAERS Safety Report 9477343 (Version 2)
Quarter: 2013Q3

REPORT INFORMATION
  Report Type: Spontaneous
  Country: JP (occurrence: JP)
  Receive Date: 20130826
  Receipt Date: 20130905
  Transmission Date: 20140515
  Serious: Yes (Other)
  Sender: FDA-Public Use
  Company Number: JP-ASTRAZENECA-2013SE65337

PATIENT
  Age: 75 Year
  Sex: Female
  Weight: 36.3 kg

DRUGS (5)
  1. SEROQUEL [Suspect]
     Indication: ABNORMAL BEHAVIOUR
     Route: 048
     Dates: start: 20130726, end: 20130731
  2. TANATRIL [Concomitant]
  3. ARTIST [Concomitant]
  4. TAKEPRON [Concomitant]
  5. WARFARIN [Concomitant]

REACTIONS (4)
  - Altered state of consciousness [Recovered/Resolved]
  - Muscle spasms [Recovered/Resolved]
  - Vomiting [Recovered/Resolved]
  - Intentional drug misuse [Unknown]
